FAERS Safety Report 6901117-X (Version None)
Quarter: 2010Q3

REPORT INFORMATION
  Report Type: 
  Country: None (occurrence: None)
  Receive Date: 20100803
  Receipt Date: 20100720
  Transmission Date: 20110219
  Serious: Yes (Other)
  Sender: FDA-Public Use
  Company Number: CN-JNJFOC-20100709097

PATIENT
  Age: 32 Month
  Sex: Male

DRUGS (2)
  1. ANTUSS INFANTS' DECONGESTANT + COUGH [Suspect]
     Indication: NASOPHARYNGITIS
     Route: 048
  2. ANTUSS INFANTS' DECONGESTANT + COUGH [Suspect]
     Route: 048

REACTIONS (2)
  - ACCIDENTAL DRUG INTAKE BY CHILD [None]
  - ACCIDENTAL OVERDOSE [None]
